FAERS Safety Report 5900358-8 (Version None)
Quarter: 2008Q3

REPORT INFORMATION
  Report Type: 
  Country: None (occurrence: None)
  Receive Date: 20080926
  Receipt Date: 20080916
  Transmission Date: 20090109
  Serious: Yes (Hospitalization, Other)
  Sender: FDA-Public Use
  Company Number: JP-PFIZER INC-2008078329

PATIENT
  Sex: Female
  Weight: 47 kg

DRUGS (4)
  1. SU-011,248 [Suspect]
     Indication: RENAL CELL CARCINOMA
     Route: 048
     Dates: start: 20080801, end: 20080826
  2. OMEPRAZOLE [Concomitant]
     Route: 048
  3. GANATON [Concomitant]
     Route: 048
  4. LEVOTHYROXINE SODIUM [Concomitant]
     Route: 048

REACTIONS (4)
  - EJECTION FRACTION DECREASED [None]
  - HYPOTHYROIDISM [None]
  - WHITE BLOOD CELL COUNT DECREASED [None]
  - WOUND DEHISCENCE [None]
